FAERS Safety Report 8759469 (Version 3)
Quarter: 2013Q4

REPORT INFORMATION
  Report Type: Spontaneous
  Country: US (occurrence: US)
  Receive Date: 20120829
  Receipt Date: 20131101
  Transmission Date: 20140711
  Serious: No
  Sender: FDA-Public Use
  Company Number: US-MERCK-1206USA02124

PATIENT
  Age: 73 Year
  Sex: Female
  Weight: 87.54 kg

DRUGS (4)
  1. JANUVIA [Suspect]
     Indication: TYPE 2 DIABETES MELLITUS
     Dosage: 100 MG, QD
     Route: 048
     Dates: start: 20110801
  2. DIOVAN HCT [Concomitant]
  3. TOPROL XL TABLETS [Concomitant]
  4. CRESTOR [Concomitant]

REACTIONS (3)
  - Blood glucose increased [Recovered/Resolved]
  - Glucose tolerance test abnormal [Recovered/Resolved]
  - Headache [Unknown]
